FAERS Safety Report 6382681-9 (Version None)
Quarter: 2009Q3

REPORT INFORMATION
  Report Type: 
  Country: None (occurrence: None)
  Receive Date: 20090928
  Receipt Date: 20090928
  Transmission Date: 20100115
  Serious: Yes (Other)
  Sender: FDA-Public Use
  Company Number: None

PATIENT
  Sex: Female
  Weight: 110.6777 kg

DRUGS (1)
  1. TOPIRAMATE [Suspect]
     Indication: TRIGEMINAL NEURALGIA
     Dosage: PO
     Route: 048
     Dates: start: 20090601, end: 20090923

REACTIONS (3)
  - CONDITION AGGRAVATED [None]
  - PRODUCT SUBSTITUTION ISSUE [None]
  - TRIGEMINAL NEURALGIA [None]
